FAERS Safety Report 8618696-7 (Version None)
Quarter: 2012Q3

REPORT INFORMATION
  Report Type: 
  Country: None (occurrence: None)
  Receive Date: 20120824
  Receipt Date: 20120814
  Transmission Date: 20120928
  Serious: Yes (Other)
  Sender: FDA-Public Use
  Company Number: US-JNJFOC-20120710214

PATIENT
  Sex: Female
  Weight: 104.33 kg

DRUGS (17)
  1. TYLENOL [Concomitant]
     Indication: PREMEDICATION
     Route: 048
     Dates: start: 20120717
  2. HEPATITIS A VACCINE [Concomitant]
     Route: 065
     Dates: start: 20120705
  3. REMICADE [Suspect]
     Route: 042
     Dates: start: 20120717
  4. SOLU-MEDROL [Concomitant]
     Indication: PREMEDICATION
     Route: 042
     Dates: start: 20120717
  5. QUESTRAN [Concomitant]
     Route: 065
  6. VICODIN [Concomitant]
     Route: 065
  7. REMICADE [Suspect]
     Route: 042
  8. WELLBUTRIN [Concomitant]
     Indication: ANXIETY
     Route: 065
     Dates: start: 20120723
  9. PEPCID [Concomitant]
     Route: 065
     Dates: start: 20120720
  10. PREDNISONE TAB [Concomitant]
     Route: 065
  11. CALCIUM TABLETS [Concomitant]
     Route: 065
  12. BENADRYL [Concomitant]
     Indication: PREMEDICATION
     Route: 042
     Dates: start: 20120717
  13. DIPTHERIA, PERTUSSIS, AND TETANUS VACCINE [Concomitant]
     Route: 065
  14. REMICADE [Suspect]
     Indication: CROHN'S DISEASE
     Route: 042
     Dates: start: 20120703
  15. AZATHIOPRINE SODIUM [Concomitant]
     Indication: CROHN'S DISEASE
     Route: 065
     Dates: start: 20010314
  16. NORGESTIMATE AND ETHINYL ESTRADIOL [Concomitant]
     Indication: CONTRACEPTION
     Route: 065
     Dates: start: 20100802
  17. HEPATITIS B VACCINE [Concomitant]
     Route: 065
     Dates: start: 20120705

REACTIONS (11)
  - URTICARIA [None]
  - RASH [None]
  - THROAT IRRITATION [None]
  - FLUSHING [None]
  - PRURITUS [None]
  - INFUSION RELATED REACTION [None]
  - MUSCLE TIGHTNESS [None]
  - EAR PRURITUS [None]
  - DYSPNOEA [None]
  - PALPITATIONS [None]
  - CHEST DISCOMFORT [None]
